FAERS Safety Report 7189436-6 (Version None)
Quarter: 2010Q4

REPORT INFORMATION
  Report Type: 
  Country: None (occurrence: None)
  Receive Date: 20101222
  Receipt Date: 20101213
  Transmission Date: 20110411
  Serious: Yes (Other)
  Sender: FDA-Public Use
  Company Number: AR-AMGEN-ARGSP2010009363

PATIENT

DRUGS (3)
  1. ENBREL [Suspect]
     Indication: PSORIATIC ARTHROPATHY
     Dosage: UNK
     Dates: end: 20101128
  2. ENBREL [Suspect]
     Dosage: 50 MG, WEEKLY
     Route: 058
     Dates: start: 20090101, end: 20101128
  3. AMLODIPINE [Concomitant]
     Dosage: UNK
     Dates: start: 20100101

REACTIONS (4)
  - DIZZINESS [None]
  - HYPERSENSITIVITY [None]
  - PYREXIA [None]
  - SURGERY [None]
